FAERS Safety Report 7626974-3 (Version None)
Quarter: 2011Q3

REPORT INFORMATION
  Report Type: 
  Country: None (occurrence: None)
  Receive Date: 20110721
  Receipt Date: 20110621
  Transmission Date: 20111222
  Serious: Yes (Hospitalization)
  Sender: FDA-Public Use
  Company Number: PHHY2011US65005

PATIENT
  Sex: Female

DRUGS (1)
  1. LORAZEPAM [Suspect]
     Indication: MENTAL DISORDER
     Dosage: UNK

REACTIONS (4)
  - SEDATION [None]
  - RESPIRATORY DISTRESS [None]
  - ASPIRATION [None]
  - STAPHYLOCOCCAL INFECTION [None]
